FAERS Safety Report 23339397 (Version 2)
Quarter: 2023Q4

REPORT INFORMATION
  Report Type: Report from Study
  Country: US (occurrence: US)
  Receive Date: 20231226
  Receipt Date: 20231229
  Transmission Date: 20240109
  Serious: Yes (Hospitalization, Other)
  Sender: FDA-Public Use
  Company Number: US-ABBVIE-5430419

PATIENT
  Age: 67 Year
  Sex: Female
  Weight: 80 kg

DRUGS (14)
  1. VENCLEXTA [Suspect]
     Active Substance: VENETOCLAX
     Indication: Chronic lymphocytic leukaemia
     Dosage: FORM STRENGTH UNITS: 20 MILLIGRAM
     Route: 048
     Dates: start: 20190109, end: 20190115
  2. VENCLEXTA [Suspect]
     Active Substance: VENETOCLAX
     Indication: Chronic lymphocytic leukaemia
     Dosage: FORM STRENGTH: 50 MG
     Route: 048
     Dates: start: 20190116, end: 20190122
  3. AMLODIPINE [Concomitant]
     Active Substance: AMLODIPINE BESYLATE
     Indication: Hypertension
  4. LOSARTAN [Concomitant]
     Active Substance: LOSARTAN
     Indication: Hypertension
  5. ZINC [Concomitant]
     Active Substance: PYRITHIONE ZINC\ZINC\ZINC CHLORIDE
     Indication: COVID-19 prophylaxis
  6. ESTRADIOL [Concomitant]
     Active Substance: ESTRADIOL
     Indication: Hysterectomy
  7. VITAMIN D [Concomitant]
     Active Substance: VITAMIN D NOS
     Indication: Bone density abnormal
  8. VITAMIN C [Concomitant]
     Active Substance: ASCORBIC ACID
     Indication: Product used for unknown indication
  9. CALCIUM [Concomitant]
     Active Substance: CALCIUM
     Indication: Bone density abnormal
  10. POTASSIUM CHLORIDE [Concomitant]
     Active Substance: POTASSIUM CHLORIDE
     Indication: Blood potassium decreased
  11. VITAMINS [Concomitant]
     Active Substance: VITAMINS
     Indication: Vitamin supplementation
  12. OMEPRAZOLE [Concomitant]
     Active Substance: OMEPRAZOLE
     Indication: Gastrointestinal disorder
  13. BIOTIN [Concomitant]
     Active Substance: BIOTIN
     Indication: Hair disorder
  14. PROGESTERONE DCI [Concomitant]
     Indication: Hysterectomy

REACTIONS (17)
  - Thrombosis [Recovered/Resolved]
  - Blood triglycerides increased [Recovering/Resolving]
  - Eyelid operation [Unknown]
  - Post procedural swelling [Recovering/Resolving]
  - Neoplasm malignant [Unknown]
  - Blood cholesterol increased [Recovering/Resolving]
  - Blood triglycerides increased [Unknown]
  - Neuropathy peripheral [Unknown]
  - Pharyngitis streptococcal [Recovered/Resolved]
  - Frustration tolerance decreased [Unknown]
  - White blood cell count decreased [Recovering/Resolving]
  - COVID-19 [Recovered/Resolved]
  - Pneumonia [Recovered/Resolved]
  - Investigation abnormal [Unknown]
  - Recurrent cancer [Not Recovered/Not Resolved]
  - Neuropathy peripheral [Not Recovered/Not Resolved]
  - Atrial fibrillation [Recovering/Resolving]

NARRATIVE: CASE EVENT DATE: 20221201
